FAERS Safety Report 21456920 (Version 1)
Quarter: 2022Q4

REPORT INFORMATION
  Report Type: Spontaneous
  Country: US (occurrence: US)
  Receive Date: 20221014
  Receipt Date: 20221014
  Transmission Date: 20230113
  Serious: No
  Sender: FDA-Public Use
  Company Number: US-009507513-2210USA003142

PATIENT
  Age: 20 Year
  Sex: Female

DRUGS (3)
  1. ZOLINZA [Suspect]
     Active Substance: VORINOSTAT
     Indication: Acute myeloid leukaemia
     Dosage: UNK
     Route: 048
  2. DECITABINE [Concomitant]
     Active Substance: DECITABINE
     Indication: Acute myeloid leukaemia
     Dosage: UNK
  3. SUNITINIB [Concomitant]
     Active Substance: SUNITINIB
     Indication: Acute myeloid leukaemia
     Dosage: UNK

REACTIONS (1)
  - Product use in unapproved indication [Unknown]
